FAERS Safety Report 7002333-1 (Version None)
Quarter: 2010Q3

REPORT INFORMATION
  Report Type: 
  Country: None (occurrence: None)
  Receive Date: 20100920
  Receipt Date: 20090922
  Transmission Date: 20110219
  Serious: Yes (Other)
  Sender: FDA-Public Use
  Company Number: US-ASTRAZENECA-2009UW13718

PATIENT
  Age: 38 Year
  Sex: Male
  Weight: 127 kg

DRUGS (5)
  1. SEROQUEL [Suspect]
     Route: 048
     Dates: start: 19990101, end: 20060101
  2. SEROQUEL [Suspect]
     Route: 048
     Dates: start: 20040101
  3. RISPERDAL [Concomitant]
     Indication: BIPOLAR I DISORDER
     Dates: start: 20020101
  4. ZYPREXA [Concomitant]
     Indication: BIPOLAR I DISORDER
     Dates: start: 20060101
  5. HALDOL [Concomitant]
     Dates: start: 19800101

REACTIONS (4)
  - BLOOD CHOLESTEROL INCREASED [None]
  - HYPERGLYCAEMIA [None]
  - HYPERLIPIDAEMIA [None]
  - PANCREATITIS CHRONIC [None]
